FAERS Safety Report 21156915 (Version 2)
Quarter: 2022Q3

REPORT INFORMATION
  Report Type: Spontaneous
  Country: US (occurrence: None)
  Receive Date: 20220801
  Receipt Date: 20220823
  Transmission Date: 20221027
  Serious: No
  Sender: FDA-Public Use
  Company Number: 2022A250075

PATIENT

DRUGS (2)
  1. FASENRA [Suspect]
     Active Substance: BENRALIZUMAB
     Dosage: UNKNOWN
     Route: 058
  2. FASENRA [Concomitant]
     Active Substance: BENRALIZUMAB
     Route: 058

REACTIONS (2)
  - Dizziness [Unknown]
  - Headache [Unknown]
